FAERS Safety Report 6437121-8 (Version None)
Quarter: 2009Q4

REPORT INFORMATION
  Report Type: 
  Country: None (occurrence: None)
  Receive Date: 20091112
  Receipt Date: 20091103
  Transmission Date: 20100525
  Serious: Yes (Hospitalization)
  Sender: FDA-Public Use
  Company Number: US-ASTRAZENECA-2009SE24275

PATIENT
  Sex: Female

DRUGS (1)
  1. CRESTOR [Suspect]
     Route: 048

REACTIONS (5)
  - CARDIAC DISORDER [None]
  - CORONARY ARTERY BYPASS [None]
  - DRUG DOSE OMISSION [None]
  - HYPERCHOLESTEROLAEMIA [None]
  - STENT PLACEMENT [None]
